FAERS Safety Report 17399511 (Version 1)
Quarter: 2020Q1

REPORT INFORMATION
  Report Type: Spontaneous
  Country: DE (occurrence: DE)
  Receive Date: 20200211
  Receipt Date: 20200211
  Transmission Date: 20200409
  Serious: Yes (Other)
  Sender: FDA-Public Use
  Company Number: DE-SUN PHARMACEUTICAL INDUSTRIES LTD-2020RR-236171

PATIENT
  Sex: Male
  Weight: 92 kg

DRUGS (15)
  1. MABTHERA [Suspect]
     Active Substance: RITUXIMAB
     Dosage: 3RD LINE TREATMENT, ACCORDING TO R-DHAP REGIME, 2 CYCLES ()
     Route: 065
     Dates: start: 20190111, end: 20190201
  2. MABTHERA [Suspect]
     Active Substance: RITUXIMAB
     Dosage: 2ND LINE TREATMENT, ACCORDING TO R-ICE REGIME, 1 CYCLE ()
     Route: 065
     Dates: start: 201812, end: 201901
  3. CISPLATIN. [Suspect]
     Active Substance: CISPLATIN
     Indication: PRODUCT USED FOR UNKNOWN INDICATION
     Dosage: 4TH LINE TREATMENT, ACCORDING TO R-GDP REGIME, 1 CYCLE ()
     Route: 065
     Dates: start: 20190221, end: 201903
  4. DEXAMETHASONE. [Suspect]
     Active Substance: DEXAMETHASONE
     Indication: DIFFUSE LARGE B-CELL LYMPHOMA
     Dosage: 4TH LINE TREATMENT, ACCORDING TO R-GDP REGIME, 1 CYCLE ()
     Route: 065
     Dates: start: 20190221, end: 201903
  5. MABTHERA [Suspect]
     Active Substance: RITUXIMAB
     Indication: PRODUCT USED FOR UNKNOWN INDICATION
     Dosage: 4TH LINE TREATMENT, ACCORDING TO R-GDP REGIME, 1 CYCLE ()
     Route: 065
     Dates: start: 20190221, end: 201903
  6. CARBOPLATIN. [Suspect]
     Active Substance: CARBOPLATIN
     Indication: DIFFUSE LARGE B-CELL LYMPHOMA
     Dosage: 2ND LINE TREATMENT, ACCORDING TO R-ICE REGIME, 1 CYCLE ()
     Route: 065
     Dates: start: 201812, end: 201901
  7. GEMCITABINE. [Suspect]
     Active Substance: GEMCITABINE
     Indication: DIFFUSE LARGE B-CELL LYMPHOMA
     Dosage: 4 TH LINE TREATMENT, ACCORDING TO R-GDP REGIME, 1 CYCLE ()
     Route: 065
     Dates: start: 20190221, end: 201903
  8. MABTHERA [Suspect]
     Active Substance: RITUXIMAB
     Dosage: 5TH LINE TREATMENT, RITUXIMAB TOGETHER WITH LENALIDOMID AND DEXAMETHASONE, 5 CYCLES ()
     Route: 065
     Dates: start: 201904, end: 201909
  9. CHOP [Suspect]
     Active Substance: CYCLOPHOSPHAMIDE\DOXORUBICIN\PREDNISONE\VINCRISTINE
     Indication: DIFFUSE LARGE B-CELL LYMPHOMA
     Dosage: 1ST LINE TREATMENT, ACCORDING TO R-CHOP REGIME, 6 CYCLES ()
     Route: 065
     Dates: start: 201803, end: 201807
  10. LENALIDOMIDE [Suspect]
     Active Substance: LENALIDOMIDE
     Indication: DIFFUSE LARGE B-CELL LYMPHOMA
     Dosage: 5TH LINE TREATMENT,  TOGETHER WITH RITUXIMAB AND DEXAMETHASONE, 5 CYCLES ()
     Route: 065
     Dates: start: 201904, end: 201909
  11. ETOPOSIDE. [Suspect]
     Active Substance: ETOPOSIDE
     Indication: DIFFUSE LARGE B-CELL LYMPHOMA
     Dosage: 2ND LINE TREATMENT, ACCORDING TO R-ICE REGIME, 1 CYCLE ()
     Route: 065
     Dates: start: 201812, end: 201901
  12. MABTHERA [Suspect]
     Active Substance: RITUXIMAB
     Dosage: 375 MG/M2, QMO (1ST LINE TREATMENT, ACCORDING TO R-CHOP REGIME, 6 CYCLES)
     Route: 065
     Dates: start: 201803, end: 201807
  13. DHAP [Suspect]
     Active Substance: CISPLATIN\CYTARABINE\DEXAMETHASONE
     Indication: DIFFUSE LARGE B-CELL LYMPHOMA
     Dosage: 3RD LINE TREATMENT, ACCORDING TO R-DHAP REGIME, 2 CYCLES ()
     Route: 065
     Dates: start: 20190111, end: 20190201
  14. IFOSFAMIDE. [Suspect]
     Active Substance: IFOSFAMIDE
     Indication: DIFFUSE LARGE B-CELL LYMPHOMA
     Dosage: 2ND LINE TREATMENT, ACCORDING TO R-ICE REGIME, 1 CYCLE ()
     Route: 065
     Dates: start: 201812, end: 201901
  15. DEXAMETHASONE. [Suspect]
     Active Substance: DEXAMETHASONE
     Dosage: 5TH LINE TREATMENT, TOGETHER WITH LENALIDOMID AND RITUXIMAB, 5 CYCLES ()
     Route: 065
     Dates: start: 201904, end: 201909

REACTIONS (2)
  - Neuropathy peripheral [Unknown]
  - Fatigue [Unknown]
